APPROVED DRUG PRODUCT: PIOGLITAZONE HYDROCHLORIDE AND METFORMIN HYDROCHLORIDE
Active Ingredient: METFORMIN HYDROCHLORIDE; PIOGLITAZONE HYDROCHLORIDE
Strength: 850MG;EQ 15MG BASE
Dosage Form/Route: TABLET;ORAL
Application: A090406 | Product #002
Applicant: PHARMOBEDIENT CONSULTING LLC
Approved: Feb 25, 2011 | RLD: No | RS: No | Type: DISCN